FAERS Safety Report 5785354-6 (Version None)
Quarter: 2008Q2

REPORT INFORMATION
  Report Type: 
  Country: None (occurrence: None)
  Receive Date: 20080605
  Receipt Date: 20080306
  Transmission Date: 20081010
  Serious: No
  Sender: FDA-Public Use
  Company Number: A0707091A

PATIENT
  Age: 36 Year
  Sex: Female

DRUGS (3)
  1. ALLI [Suspect]
     Dates: start: 20080120
  2. LACTASE ENZYME [Concomitant]
  3. DICYCLOMINE [Concomitant]

REACTIONS (1)
  - DRUG INEFFECTIVE [None]
